FAERS Safety Report 5069837-2 (Version None)
Quarter: 2006Q3

REPORT INFORMATION
  Report Type: 
  Country: None (occurrence: None)
  Receive Date: 20060802
  Receipt Date: 20060802
  Transmission Date: 20061208
  Serious: Yes (Hospitalization)
  Sender: FDA-Public Use
  Company Number: None

PATIENT
  Sex: Male
  Weight: 74.8435 kg

DRUGS (2)
  1. ERBITUX [Suspect]
     Indication: NEOPLASM MALIGNANT
     Dosage: 483 MG IV/EVERY WEEK
     Route: 042
     Dates: start: 20060620
  2. ALIMTA [Suspect]
     Indication: NEOPLASM MALIGNANT
     Dosage: 386 MG IV/EVERY 3 WEEKS
     Route: 042
     Dates: start: 20060627

REACTIONS (2)
  - HAEMORRHAGE [None]
  - TRACHEOSTOMY MALFUNCTION [None]
